FAERS Safety Report 22037068 (Version 1)
Quarter: 2023Q1

REPORT INFORMATION
  Report Type: Spontaneous
  Country: US (occurrence: US)
  Receive Date: 20230226
  Receipt Date: 20230226
  Transmission Date: 20230417
  Serious: Yes (Hospitalization, Other)
  Sender: FDA-Public Use
  Company Number: US-JNJFOC-20230240881

PATIENT
  Age: 14 Year
  Sex: Female

DRUGS (5)
  1. TRACLEER [Suspect]
     Active Substance: BOSENTAN
     Indication: Product used for unknown indication
     Route: 048
  2. REMODULIN [Suspect]
     Active Substance: TREPROSTINIL
     Indication: Pulmonary arterial hypertension
     Route: 058
     Dates: start: 20210609
  3. REMODULIN [Suspect]
     Active Substance: TREPROSTINIL
     Route: 058
  4. AMBRISENTAN [Concomitant]
     Active Substance: AMBRISENTAN
     Indication: Product used for unknown indication
     Route: 065
  5. TADALAFIL [Concomitant]
     Active Substance: TADALAFIL

REACTIONS (3)
  - Drug-induced liver injury [Unknown]
  - Ascites [Unknown]
  - Oedema [Unknown]

NARRATIVE: CASE EVENT DATE: 20230110
